FAERS Safety Report 10048661 (Version 1)
Quarter: 2014Q1

REPORT INFORMATION
  Report Type: Spontaneous
  Country: US (occurrence: US)
  Receive Date: 20140331
  Receipt Date: 20140331
  Transmission Date: 20141002
  Serious: Yes (Other)
  Sender: FDA-Public Use
  Company Number: US-PFIZER INC-2014090223

PATIENT
  Age: 64 Year
  Sex: Male
  Weight: 113.38 kg

DRUGS (6)
  1. EFFEXOR XR [Suspect]
     Indication: BIPOLAR I DISORDER
     Dosage: UNK
  2. VENLAFAXINE HCL [Suspect]
     Indication: BIPOLAR I DISORDER
     Dosage: UNK
  3. SEROQUEL [Concomitant]
     Dosage: 400 MG, 1X/DAY
  4. DEPAKOTE [Concomitant]
     Indication: EPILEPSY
     Dosage: 500 MG, 2X/DAY
  5. XANAX [Concomitant]
     Dosage: 2 MG, 2X/DAY
  6. HYDROCHLOROTHIAZIDE [Concomitant]
     Dosage: UNK

REACTIONS (1)
  - Convulsion [Unknown]
